FAERS Safety Report 16999093 (Version 3)
Quarter: 2021Q2

REPORT INFORMATION
  Report Type: Spontaneous
  Country: US (occurrence: US)
  Receive Date: 20191105
  Receipt Date: 20210521
  Transmission Date: 20210716
  Serious: No
  Sender: FDA-Public Use
  Company Number: US-RADIUS HEALTH INC.-2019US003095

PATIENT
  Age: 64 Year
  Sex: Female

DRUGS (4)
  1. TYMLOS [Suspect]
     Active Substance: ABALOPARATIDE
     Dosage: 80MCG, QD
     Route: 058
     Dates: start: 20190814
  2. TYMLOS [Suspect]
     Active Substance: ABALOPARATIDE
     Indication: OSTEOPOROSIS
     Dosage: 80MCG, QD
     Route: 058
     Dates: start: 20190814
  3. TYMLOS [Suspect]
     Active Substance: ABALOPARATIDE
     Indication: OSTEOPOROSIS POSTMENOPAUSAL
     Dosage: 80MCG, QD
     Route: 058
     Dates: start: 20190814
  4. TYMLOS [Suspect]
     Active Substance: ABALOPARATIDE
     Dosage: 80MCG, QD
     Route: 058
     Dates: start: 20190814

REACTIONS (8)
  - Product dose omission issue [Unknown]
  - Injection site haemorrhage [Recovered/Resolved]
  - Wrong technique in device usage process [Unknown]
  - Herpes zoster [Recovered/Resolved]
  - Exposure via skin contact [Unknown]
  - Injection site bruising [Recovering/Resolving]
  - Injection site pain [Recovered/Resolved]
  - Product quality issue [Unknown]

NARRATIVE: CASE EVENT DATE: 202003
